APPROVED DRUG PRODUCT: HALOPERIDOL
Active Ingredient: HALOPERIDOL
Strength: 2MG
Dosage Form/Route: TABLET;ORAL
Application: A070278 | Product #001 | TE Code: AB
Applicant: MYLAN PHARMACEUTICALS INC
Approved: Jun 10, 1986 | RLD: No | RS: Yes | Type: RX